FAERS Safety Report 10396887 (Version 3)
Quarter: 2014Q4

REPORT INFORMATION
  Report Type: Spontaneous
  Country: US (occurrence: US)
  Receive Date: 20140820
  Receipt Date: 20141016
  Transmission Date: 20150528
  Serious: Yes (Death)
  Sender: FDA-Public Use
  Company Number: US-BAUSCH-SYM-2014-24160

PATIENT
  Age: 65 Year
  Sex: Female

DRUGS (29)
  1. ENULOSE [Concomitant]
     Active Substance: LACTULOSE
     Indication: CONSTIPATION
     Dosage: 10G/15ML
     Route: 048
     Dates: start: 20130225
  2. TYLENOL [Concomitant]
     Active Substance: ACETAMINOPHEN
     Indication: PAIN
     Route: 048
     Dates: start: 20121227
  3. NORVASC [Concomitant]
     Active Substance: AMLODIPINE BESYLATE
     Indication: ESSENTIAL HYPERTENSION
     Route: 048
  4. MACUGEN [Suspect]
     Active Substance: PEGAPTANIB SODIUM
     Indication: DIABETIC RETINOPATHY
     Route: 031
     Dates: start: 20130408
  5. PRILOSEC [Concomitant]
     Active Substance: OMEPRAZOLE MAGNESIUM
     Indication: GASTROOESOPHAGEAL REFLUX DISEASE
     Route: 048
     Dates: start: 20121227
  6. PROZAC [Concomitant]
     Active Substance: FLUOXETINE HYDROCHLORIDE
     Indication: DEPRESSION
     Route: 048
     Dates: start: 20121227
  7. VITAMIN D3 [Concomitant]
     Active Substance: CHOLECALCIFEROL
     Indication: RENAL FAILURE
     Route: 048
     Dates: start: 20121227
  8. COLACE [Concomitant]
     Active Substance: DOCUSATE SODIUM
     Indication: CONSTIPATION
     Route: 048
     Dates: start: 20121227
  9. MAG-OX 400 [Concomitant]
     Indication: RENAL FAILURE
     Route: 048
     Dates: start: 20121227
  10. METOPROLOL TARTRATE. [Concomitant]
     Active Substance: METOPROLOL TARTRATE
     Indication: ESSENTIAL HYPERTENSION
     Route: 048
     Dates: start: 20121227
  11. GABAPENTIN. [Concomitant]
     Active Substance: GABAPENTIN
     Indication: SEIZURE
     Route: 048
     Dates: start: 20121228
  12. COUMADIN [Concomitant]
     Active Substance: WARFARIN SODIUM
     Indication: CEREBROVASCULAR DISORDER
     Route: 048
     Dates: start: 20121228
  13. LIPITOR [Concomitant]
     Active Substance: ATORVASTATIN CALCIUM
     Indication: HYPERCHOLESTEROLAEMIA
     Route: 048
     Dates: start: 20121227
  14. VITAMIN B12 [Concomitant]
     Active Substance: CYANOCOBALAMIN
     Indication: OSTEOARTHRITIS
     Route: 048
     Dates: start: 20121227
  15. NORCO [Concomitant]
     Active Substance: ACETAMINOPHEN\HYDROCODONE BITARTRATE
     Dosage: 325 MG-5 MG
     Route: 048
     Dates: start: 20130312
  16. PREDNISOL [Concomitant]
     Indication: CATARACT
     Route: 047
     Dates: start: 20130417
  17. BUMEX [Concomitant]
     Active Substance: BUMETANIDE
     Indication: CHRONIC KIDNEY DISEASE
     Route: 048
     Dates: start: 20121227
  18. MIRALAX [Concomitant]
     Active Substance: POLYETHYLENE GLYCOL 3350
     Indication: CONSTIPATION
     Dosage: 325 MG-5 MG
     Route: 048
     Dates: start: 20121227
  19. CARDURA [Concomitant]
     Active Substance: DOXAZOSIN MESYLATE
     Indication: ESSENTIAL HYPERTENSION
     Route: 048
     Dates: start: 20121227
  20. ZYLOPRIM [Concomitant]
     Active Substance: ALLOPURINOL
     Indication: GOUT
     Route: 048
     Dates: start: 20121227
  21. GAS RELIEF ULTRA STRENGTH SOFTGELS [Concomitant]
     Indication: NAUSEA
     Route: 048
     Dates: start: 20130215
  22. REQUIP [Concomitant]
     Active Substance: ROPINIROLE HYDROCHLORIDE
     Indication: RESTLESS LEGS SYNDROME
     Route: 048
     Dates: start: 20121227
  23. ACULAR [Concomitant]
     Active Substance: KETOROLAC TROMETHAMINE
     Indication: CATARACT
     Route: 047
     Dates: start: 20130413, end: 20130423
  24. OCUFLOX [Concomitant]
     Active Substance: OFLOXACIN
     Indication: CATARACT
     Route: 047
     Dates: start: 20130413, end: 20130423
  25. FLEXERIL [Concomitant]
     Active Substance: CYCLOBENZAPRINE HYDROCHLORIDE
     Indication: MUSCLE DISORDER
     Route: 048
     Dates: start: 20121227
  26. ZOFRAN [Concomitant]
     Active Substance: ONDANSETRON HYDROCHLORIDE
     Indication: NAUSEA
     Route: 048
     Dates: start: 20130129
  27. ZOFRAN [Concomitant]
     Active Substance: ONDANSETRON HYDROCHLORIDE
     Route: 048
     Dates: start: 20130129
  28. FLEXERIL [Concomitant]
     Active Substance: CYCLOBENZAPRINE HYDROCHLORIDE
     Route: 048
     Dates: start: 20130313
  29. NORCO [Concomitant]
     Active Substance: ACETAMINOPHEN\HYDROCODONE BITARTRATE
     Indication: PAIN
     Dosage: 325 MG-5 MG
     Route: 048
     Dates: start: 20130306

REACTIONS (2)
  - Carotid artery stenosis [None]
  - Death [Fatal]

NARRATIVE: CASE EVENT DATE: 20130507
